FAERS Safety Report 10153177 (Version 2)
Quarter: 2014Q2

REPORT INFORMATION
  Report Type: Spontaneous
  Country: US (occurrence: US)
  Receive Date: 20140505
  Receipt Date: 20140522
  Transmission Date: 20141212
  Serious: No
  Sender: FDA-Public Use
  Company Number: US-GILEAD-2014-0101600

PATIENT
  Age: 51 Year
  Sex: Male

DRUGS (5)
  1. LETAIRIS [Suspect]
     Indication: PRODUCT USED FOR UNKNOWN INDICATION
     Dosage: 10 MG, QD
     Route: 065
     Dates: start: 20131031
  2. REMODULIN [Concomitant]
  3. CLINDAMYCIN [Concomitant]
  4. COUMADIN                           /00014802/ [Concomitant]
  5. REVATIO [Concomitant]

REACTIONS (2)
  - Purulent discharge [Unknown]
  - Infusion site infection [Unknown]
